FAERS Safety Report 17178911 (Version 1)
Quarter: 2019Q4

REPORT INFORMATION
  Report Type: Spontaneous
  Country: CA (occurrence: CA)
  Receive Date: 20191219
  Receipt Date: 20191219
  Transmission Date: 20200122
  Serious: Yes (Hospitalization)
  Sender: FDA-Public Use
  Company Number: CA-ROCHE-2501024

PATIENT
  Age: 64 Year
  Sex: Male
  Weight: 126 kg

DRUGS (22)
  1. CLONAZEPAM. [Suspect]
     Active Substance: CLONAZEPAM
     Indication: AGITATION
     Route: 048
  2. BISACODYL. [Concomitant]
     Active Substance: BISACODYL
     Route: 065
  3. CLOBAZAM. [Concomitant]
     Active Substance: CLOBAZAM
  4. MACROGOL 3350 [Concomitant]
     Active Substance: POLYETHYLENE GLYCOL 3350
     Route: 065
  5. LOXAPINE. [Concomitant]
     Active Substance: LOXAPINE
     Route: 065
  6. OLANZAPINE. [Concomitant]
     Active Substance: OLANZAPINE
     Route: 065
  7. TRIAMCINOLONE [Concomitant]
     Active Substance: TRIAMCINOLONE
     Route: 065
  8. VITAMIN D3 [Concomitant]
     Active Substance: CHOLECALCIFEROL
     Route: 065
  9. ACETAZOLAMIDE. [Concomitant]
     Active Substance: ACETAZOLAMIDE
     Route: 065
  10. ASPIRIN [ACETYLSALICYLIC ACID] [Concomitant]
     Active Substance: ASPIRIN
     Route: 065
  11. MEDROXYPROGESTERONE [Concomitant]
     Active Substance: MEDROXYPROGESTERONE
  12. CLONAZEPAM. [Suspect]
     Active Substance: CLONAZEPAM
     Route: 048
  13. CLONAZEPAM. [Suspect]
     Active Substance: CLONAZEPAM
     Route: 048
  14. ZINC OXIDE. [Concomitant]
     Active Substance: ZINC OXIDE
     Route: 065
  15. ZOPICLONE [Concomitant]
     Active Substance: ZOPICLONE
  16. CLONAZEPAM. [Suspect]
     Active Substance: CLONAZEPAM
     Route: 048
  17. LAMOTRIGINE. [Concomitant]
     Active Substance: LAMOTRIGINE
  18. CLONAZEPAM. [Suspect]
     Active Substance: CLONAZEPAM
     Route: 048
  19. LAXASENE [Concomitant]
     Active Substance: HERBALS\SENNA LEAF\SENNOSIDES
     Route: 065
  20. VALPROIC ACID. [Concomitant]
     Active Substance: VALPROIC ACID
  21. ACETAMINOPHEN. [Concomitant]
     Active Substance: ACETAMINOPHEN
     Route: 065
  22. LACTULOSE. [Concomitant]
     Active Substance: LACTULOSE

REACTIONS (2)
  - Somnolence [Recovering/Resolving]
  - Pneumonia aspiration [Recovering/Resolving]
